FAERS Safety Report 6201861-6 (Version None)
Quarter: 2009Q2

REPORT INFORMATION
  Report Type: 
  Country: None (occurrence: None)
  Receive Date: 20090520
  Receipt Date: 20090508
  Transmission Date: 20091009
  Serious: Yes (Other)
  Sender: FDA-Public Use
  Company Number: 09-000755

PATIENT
  Age: 79 Year
  Sex: Female
  Weight: 65.8 kg

DRUGS (15)
  1. ESTRACE [Suspect]
     Indication: URETHRAL SYNDROME
     Dosage: VAGINAL
     Route: 067
     Dates: start: 20040101, end: 20090101
  2. ESTRACE [Suspect]
     Indication: URETHRAL SYNDROME
     Dosage: VAGINAL
     Route: 067
     Dates: start: 20090101
  3. SYNTHROID [Concomitant]
  4. CORGARD [Concomitant]
  5. NORTRIPTYLINE HCL [Concomitant]
  6. BUSPAR [Concomitant]
  7. ULTRAM [Concomitant]
  8. ADVIL [Concomitant]
  9. NEXIUM [Concomitant]
  10. IBUPROFEN [Concomitant]
  11. ASPIRIN [Concomitant]
  12. ATIVAN [Concomitant]
  13. CALTRATE /00108001/ (CALCIUM CARBONATE) [Concomitant]
  14. MULTIVITAMIN /00831701/ (VITAMINS NOS) [Concomitant]
  15. IMODIUM /00384302/ (LOPERAMIDE HYDROCHLORIDE) [Concomitant]

REACTIONS (4)
  - APPLICATION SITE DISCHARGE [None]
  - DRUG INEFFECTIVE [None]
  - MYOFASCIAL PAIN SYNDROME [None]
  - PRODUCT QUALITY ISSUE [None]
